FAERS Safety Report 16999763 (Version 1)
Quarter: 2019Q4

REPORT INFORMATION
  Report Type: Spontaneous
  Country: US (occurrence: US)
  Receive Date: 20190925
  Receipt Date: 20190925
  Transmission Date: 20200122
  Serious: No
  Sender: FDA-Public Use
  Company Number: None

PATIENT
  Age: 48 Year
  Sex: Female

DRUGS (6)
  1. HYDROXYCHLOR [Concomitant]
     Active Substance: HYDROXYCHLOROQUINE
  2. FOLIC ACID. [Concomitant]
     Active Substance: FOLIC ACID
  3. TRIAMCINILON [Concomitant]
  4. URSODIOL. [Concomitant]
     Active Substance: URSODIOL
  5. MYCOPHENOLATE [Concomitant]
     Active Substance: MYCOPHENOLIC ACID
  6. OCALIVA [Suspect]
     Active Substance: OBETICHOLIC ACID
     Indication: PRIMARY BILIARY CHOLANGITIS
     Dates: start: 20170712

REACTIONS (1)
  - Pruritus [None]

NARRATIVE: CASE EVENT DATE: 20170712
